FAERS Safety Report 5195919-0 (Version None)
Quarter: 2007Q1

REPORT INFORMATION
  Report Type: 
  Country: None (occurrence: None)
  Receive Date: 20070102
  Receipt Date: 20061219
  Transmission Date: 20070707
  Serious: Yes (Hospitalization)
  Sender: FDA-Public Use
  Company Number: US-AMGEN-US204305

PATIENT
  Sex: Female

DRUGS (2)
  1. ENBREL [Suspect]
     Indication: RHEUMATOID ARTHRITIS
     Route: 058
     Dates: start: 20040202
  2. METHOTREXATE [Concomitant]
     Route: 048
     Dates: start: 19980101

REACTIONS (11)
  - ABDOMINAL PAIN [None]
  - ARTHRALGIA [None]
  - EATING DISORDER [None]
  - HIATUS HERNIA [None]
  - ILEUS [None]
  - INTESTINAL OBSTRUCTION [None]
  - JOINT SWELLING [None]
  - OESOPHAGOGASTRODUODENOSCOPY [None]
  - PANCREATITIS ACUTE [None]
  - PYLOROPLASTY [None]
  - WEIGHT DECREASED [None]
